FAERS Safety Report 6258735-4 (Version None)
Quarter: 2009Q3

REPORT INFORMATION
  Report Type: 
  Country: None (occurrence: None)
  Receive Date: 20090707
  Receipt Date: 20090626
  Transmission Date: 20100115
  Serious: Yes (Death)
  Sender: FDA-Public Use
  Company Number: B0579059A

PATIENT
  Sex: Female
  Weight: 39 kg

DRUGS (6)
  1. LAMICTAL [Suspect]
     Indication: EPILEPSY
     Dosage: 25MG PER DAY
     Route: 048
     Dates: start: 20090430, end: 20090507
  2. DEPAKENE [Concomitant]
     Indication: EPILEPSY
     Dosage: 200MG PER DAY
     Route: 048
     Dates: start: 20080417
  3. ARICEPT [Concomitant]
     Indication: DEMENTIA ALZHEIMER'S TYPE
     Dosage: 5MG PER DAY
     Route: 048
     Dates: start: 20080807
  4. GASLON N [Concomitant]
     Indication: GASTRITIS
     Dosage: 2MG PER DAY
     Route: 048
     Dates: start: 20080918
  5. ANPLAG [Concomitant]
     Dosage: 100MG PER DAY
     Route: 048
     Dates: start: 20080502
  6. PRAVASTATIN [Concomitant]
     Dosage: 10MG PER DAY
     Route: 048
     Dates: start: 20080627

REACTIONS (2)
  - MYOCARDIAL INFARCTION [None]
  - SUDDEN DEATH [None]
